FAERS Safety Report 23226536 (Version 5)
Quarter: 2024Q4

REPORT INFORMATION
  Report Type: Spontaneous
  Country: US (occurrence: US)
  Receive Date: 20231124
  Receipt Date: 20241119
  Transmission Date: 20250115
  Serious: Yes (Hospitalization, Other)
  Sender: PFIZER
  Company Number: US-PFIZER INC-PV202300190442

PATIENT
  Age: 68 Year
  Sex: Female
  Weight: 70.748 kg

DRUGS (8)
  1. VYNDAMAX [Suspect]
     Active Substance: TAFAMIDIS
     Indication: Amyloidosis
     Dosage: 61 MG, 1X/DAY (IN THE MORNING)
     Route: 048
     Dates: start: 202210
  2. VYNDAMAX [Suspect]
     Active Substance: TAFAMIDIS
     Indication: Acquired ATTR amyloidosis
  3. VYNDAMAX [Suspect]
     Active Substance: TAFAMIDIS
     Indication: Cardiac failure chronic
  4. VYNDAMAX [Suspect]
     Active Substance: TAFAMIDIS
     Indication: Ejection fraction
  5. ELIQUIS [Concomitant]
     Active Substance: APIXABAN
     Dosage: UNK
     Dates: start: 2023
  6. ASPIRIN [Concomitant]
     Active Substance: ASPIRIN
  7. ATORVASTATIN [Concomitant]
     Active Substance: ATORVASTATIN
  8. METOPROLOL [Concomitant]
     Active Substance: METOPROLOL

REACTIONS (10)
  - Cardiac ablation [Recovered/Resolved]
  - Eye operation [Unknown]
  - Presyncope [Unknown]
  - Asthenia [Unknown]
  - Fatigue [Unknown]
  - Chest pain [Unknown]
  - Chest discomfort [Unknown]
  - Sinus bradycardia [Unknown]
  - Feeling abnormal [Unknown]
  - Coronary artery disease [Unknown]

NARRATIVE: CASE EVENT DATE: 20240715
